FAERS Safety Report 6381082-7 (Version None)
Quarter: 2009Q3

REPORT INFORMATION
  Report Type: 
  Country: None (occurrence: None)
  Receive Date: 20090925
  Receipt Date: 20090925
  Transmission Date: 20100115
  Serious: Yes (Other)
  Sender: FDA-Public Use
  Company Number: None

PATIENT
  Age: 27 Year
  Sex: Female
  Weight: 44.4525 kg

DRUGS (1)
  1. KEPPRA [Suspect]
     Indication: CONVULSION
     Dosage: 5MG ONCE A DAY PO
     Route: 048
     Dates: start: 20090523, end: 20090620

REACTIONS (8)
  - CONDITION AGGRAVATED [None]
  - CONVULSION [None]
  - DECREASED APPETITE [None]
  - DYSPHAGIA [None]
  - SEDATION [None]
  - SPEECH DISORDER [None]
  - SWELLING FACE [None]
  - WEIGHT DECREASED [None]
